FAERS Safety Report 12673901 (Version 1)
Quarter: 2016Q3

REPORT INFORMATION
  Report Type: Report from Study
  Country: IT (occurrence: JP)
  Receive Date: 20160822
  Receipt Date: 20160822
  Transmission Date: 20161109
  Serious: Yes (Other)
  Sender: FDA-Public Use
  Company Number: IT-SIGMA-TAU US-2016STPI000632

PATIENT
  Age: 77 Year
  Sex: Male

DRUGS (11)
  1. PLAVIX [Concomitant]
     Active Substance: CLOPIDOGREL BISULFATE
  2. NICORANDIL [Concomitant]
     Active Substance: NICORANDIL
  3. AMEZINIUM METILSULFATE [Concomitant]
     Active Substance: AMEZINIUM METILSULFATE
  4. MECOBALAMIN [Concomitant]
     Active Substance: METHYLCOBALAMIN
  5. KAYEXALATE [Concomitant]
     Active Substance: SODIUM POLYSTYRENE SULFONATE
  6. SORBITOL. [Concomitant]
     Active Substance: SORBITOL
  7. LANTUS [Concomitant]
     Active Substance: INSULIN GLARGINE
  8. CARNITOR [Suspect]
     Active Substance: LEVOCARNITINE
     Indication: CARNITINE DEFICIENCY
     Dosage: 1000 MG, TIW
     Route: 010
     Dates: start: 20150327
  9. CALFINA [Concomitant]
     Active Substance: ALFACALCIDOL
  10. LIVALO [Concomitant]
     Active Substance: PITAVASTATIN CALCIUM
  11. TRAZENTA [Concomitant]
     Active Substance: LINAGLIPTIN

REACTIONS (3)
  - Myocardial ischaemia [Recovering/Resolving]
  - Skin ulcer [Recovering/Resolving]
  - Rectal ulcer [Recovered/Resolved]

NARRATIVE: CASE EVENT DATE: 20150914
